FAERS Safety Report 10054035 (Version 2)
Quarter: 2015Q2

REPORT INFORMATION
  Report Type: Report from Study
  Country: NL (occurrence: NL)
  Receive Date: 20140402
  Receipt Date: 20150529
  Transmission Date: 20150821
  Serious: Yes (Death)
  Sender: FDA-Public Use
  Company Number: PHHY2013NL155814

PATIENT
  Sex: Female

DRUGS (1)
  1. TOBI PODHALER [Suspect]
     Active Substance: TOBRAMYCIN
     Indication: BRONCHIECTASIS
     Dosage: UNK (28 DAYS CYCLE)
     Route: 065

REACTIONS (2)
  - Death [Fatal]
  - Off label use [Unknown]
